FAERS Safety Report 9783624 (Version 1)
Quarter: 2013Q4

REPORT INFORMATION
  Report Type: Spontaneous
  Country: US (occurrence: US)
  Receive Date: 20131226
  Receipt Date: 20131226
  Transmission Date: 20140711
  Serious: No
  Sender: FDA-Public Use
  Company Number: US-PFIZER INC-2013367324

PATIENT
  Sex: Female

DRUGS (2)
  1. LYRICA [Suspect]
     Indication: NEURALGIA
     Dosage: 100 MG, 3X/DAY
  2. NORVASC [Suspect]
     Dosage: UNK

REACTIONS (10)
  - Gait disturbance [Unknown]
  - Dysarthria [Unknown]
  - Thinking abnormal [Unknown]
  - Coordination abnormal [Unknown]
  - Dizziness [Unknown]
  - Confusional state [Unknown]
  - Somnolence [Unknown]
  - Sedation [Unknown]
  - Balance disorder [Unknown]
  - Eye movement disorder [Unknown]
